FAERS Safety Report 23855976 (Version 1)
Quarter: 2024Q2

REPORT INFORMATION
  Report Type: Report from Study
  Country: ZA (occurrence: ZA)
  Receive Date: 20240515
  Receipt Date: 20240515
  Transmission Date: 20240716
  Serious: Yes (Death)
  Sender: FDA-Public Use
  Company Number: ZA-ABBVIE-5760044

PATIENT
  Age: 83 Year
  Sex: Female

DRUGS (2)
  1. OZURDEX [Suspect]
     Active Substance: DEXAMETHASONE
     Indication: Retinal vein occlusion
     Dosage: TIME INTERVAL: AS NECESSARY: FORM STRENGTH-DEX 0.7MG INS ?FREQUENCY TEXT: EVERY 6 MONTHS
     Route: 050
     Dates: start: 20220329, end: 20220329
  2. OZURDEX [Suspect]
     Active Substance: DEXAMETHASONE
     Indication: Macular oedema

REACTIONS (1)
  - Death [Fatal]
